FAERS Safety Report 9509433 (Version 1)
Quarter: 2013Q3

REPORT INFORMATION
  Report Type: Spontaneous
  Country: US (occurrence: US)
  Receive Date: 20130909
  Receipt Date: 20130909
  Transmission Date: 20140515
  Serious: No
  Sender: FDA-Public Use
  Company Number: US-BRISTOL-MYERS SQUIBB COMPANY-17290891

PATIENT
  Age: 58 Year
  Sex: Female

DRUGS (8)
  1. ABILIFY TABS 5 MG [Suspect]
     Dates: start: 201103
  2. PROZAC [Concomitant]
  3. LEVOXYL [Concomitant]
  4. TOPROL [Concomitant]
  5. ATACAND [Concomitant]
  6. ZOCOR [Concomitant]
  7. SIMVASTATIN [Concomitant]
  8. PLAQUENIL [Concomitant]

REACTIONS (1)
  - Alopecia [Unknown]
